FAERS Safety Report 6374788-7 (Version None)
Quarter: 2009Q3

REPORT INFORMATION
  Report Type: 
  Country: None (occurrence: None)
  Receive Date: 20090924
  Receipt Date: 20090915
  Transmission Date: 20100115
  Serious: Yes (Other)
  Sender: FDA-Public Use
  Company Number: SE-AMGEN-US365071

PATIENT
  Sex: Female

DRUGS (5)
  1. ENBREL [Suspect]
     Indication: RHEUMATOID ARTHRITIS
     Dosage: 50 MG
     Route: 065
     Dates: start: 20040714, end: 20090831
  2. FOLACIN [Concomitant]
     Dosage: TABLET 10 MG
     Route: 065
  3. DICLOFENAC [Concomitant]
     Dosage: ENTEROTABLET 50 MG
     Route: 065
  4. METHOTREXATE [Concomitant]
     Dosage: TABLET 7,5 MG
     Route: 065
  5. RELIFEX [Concomitant]
     Dosage: TABLET 500
     Route: 065

REACTIONS (3)
  - DEAFNESS UNILATERAL [None]
  - FACIAL PARESIS [None]
  - HERPES ZOSTER INFECTION NEUROLOGICAL [None]
